FAERS Safety Report 8571072-8 (Version None)
Quarter: 2012Q3

REPORT INFORMATION
  Report Type: 
  Country: None (occurrence: None)
  Receive Date: 20120730
  Receipt Date: 20120730
  Transmission Date: 20120928
  Serious: Yes (Other)
  Sender: FDA-Public Use
  Company Number: None

PATIENT
  Sex: Female
  Weight: 65.318 kg

DRUGS (2)
  1. MORPHINE SUL HYT [Suspect]
     Indication: ASTHENIA
     Dosage: 0.25 TO 1 ML EVERY HOUR PRN PO
     Route: 048
     Dates: start: 20120401, end: 20120724
  2. MORPHINE SUL HYT [Suspect]
     Indication: HOSPICE CARE
     Dosage: 0.25 TO 1 ML EVERY HOUR PRN PO
     Route: 048
     Dates: start: 20120401, end: 20120724

REACTIONS (2)
  - DRUG HYPERSENSITIVITY [None]
  - DYSPHAGIA [None]
